FAERS Safety Report 20480022 (Version 1)
Quarter: 2022Q1

REPORT INFORMATION
  Report Type: Spontaneous
  Country: US (occurrence: US)
  Receive Date: 20220216
  Receipt Date: 20220216
  Transmission Date: 20220423
  Serious: No
  Sender: FDA-Public Use
  Company Number: US-BEH-2022142264

PATIENT
  Age: 67 Year
  Sex: Female

DRUGS (3)
  1. HIZENTRA [Suspect]
     Active Substance: HUMAN IMMUNOGLOBULIN G
     Dosage: UNK
     Route: 058
     Dates: start: 20220209
  2. HIZENTRA [Suspect]
     Active Substance: HUMAN IMMUNOGLOBULIN G
     Dosage: UNK
     Route: 058
     Dates: start: 20220201
  3. HIZENTRA [Suspect]
     Active Substance: HUMAN IMMUNOGLOBULIN G
     Dosage: 10 GRAM, QW
     Route: 058
     Dates: start: 2019

REACTIONS (8)
  - Erythema [Unknown]
  - Recalled product administered [Unknown]
  - Infusion site erythema [Recovered/Resolved]
  - Recalled product administered [Recovered/Resolved]
  - Pruritus [Recovered/Resolved]
  - Recalled product administered [Unknown]
  - Infusion site mass [Unknown]
  - Recalled product administered [Recovered/Resolved]

NARRATIVE: CASE EVENT DATE: 20220201
